FAERS Safety Report 10647891 (Version 1)
Quarter: 2014Q4

REPORT INFORMATION
  Report Type: Report from Study
  Country: US (occurrence: US)
  Receive Date: 20141212
  Receipt Date: 20141212
  Transmission Date: 20150529
  Serious: Yes (Life-Threatening, Disabling, Other)
  Sender: FDA-Public Use
  Company Number: US-AMGEN-USASL2014094592

PATIENT
  Age: 44 Year
  Sex: Female
  Weight: 84.35 kg

DRUGS (1)
  1. ENBREL [Suspect]
     Active Substance: ETANERCEPT
     Indication: ANKYLOSING SPONDYLITIS
     Dosage: 50 MG, QWK
     Route: 058
     Dates: start: 201410, end: 201411

REACTIONS (14)
  - Musculoskeletal pain [Unknown]
  - Pharyngeal oedema [Recovered/Resolved with Sequelae]
  - Dyspnoea [Unknown]
  - Injection site pain [Recovered/Resolved with Sequelae]
  - Injection site erythema [Recovered/Resolved with Sequelae]
  - Peripheral swelling [Recovered/Resolved with Sequelae]
  - Bone operation [Unknown]
  - Erythema [Unknown]
  - Adverse drug reaction [Unknown]
  - Musculoskeletal disorder [Unknown]
  - Injection site pruritus [Recovered/Resolved with Sequelae]
  - Neck pain [Unknown]
  - Musculoskeletal stiffness [Not Recovered/Not Resolved]
  - Injection site swelling [Recovered/Resolved with Sequelae]

NARRATIVE: CASE EVENT DATE: 2014
